FAERS Safety Report 9221490 (Version 2)
Quarter: 2013Q2

REPORT INFORMATION
  Report Type: Spontaneous
  Country: CA (occurrence: None)
  Receive Date: 20130408
  Receipt Date: 20130506
  Transmission Date: 20140414
  Serious: Yes (Other)
  Sender: FDA-Public Use
  Company Number: 2013AP004129

PATIENT
  Sex: Male

DRUGS (1)
  1. APO-LEVETIRACETAM [Suspect]

REACTIONS (3)
  - Drug ineffective [None]
  - Convulsion [None]
  - Off label use [None]
